FAERS Safety Report 16085947 (Version 1)
Quarter: 2019Q1

REPORT INFORMATION
  Report Type: Spontaneous
  Country: US (occurrence: US)
  Receive Date: 20190318
  Receipt Date: 20190318
  Transmission Date: 20190418
  Serious: Yes (Hospitalization)
  Sender: FDA-Public Use
  Company Number: US-FRESENIUS KABI-FK201902890

PATIENT
  Sex: Male

DRUGS (4)
  1. OMEPRAZOLE. [Concomitant]
     Active Substance: OMEPRAZOLE
     Indication: PRODUCT USED FOR UNKNOWN INDICATION
     Route: 065
  2. NALTREXONE [Suspect]
     Active Substance: NALTREXONE
     Route: 065
     Dates: start: 20190202
  3. DIPRIVAN [Suspect]
     Active Substance: PROPOFOL
     Indication: COLONOSCOPY
     Route: 065
     Dates: start: 20190211, end: 20190211
  4. NALTREXONE [Suspect]
     Active Substance: NALTREXONE
     Indication: DRUG DEPENDENCE
     Route: 030

REACTIONS (3)
  - Tremor [Recovered/Resolved]
  - Anxiety [Recovered/Resolved]
  - Pneumonia [Unknown]

NARRATIVE: CASE EVENT DATE: 20190211
